FAERS Safety Report 13342935 (Version 1)
Quarter: 2017Q1

REPORT INFORMATION
  Report Type: Spontaneous
  Country: JP (occurrence: JP)
  Receive Date: 20170316
  Receipt Date: 20170316
  Transmission Date: 20170428
  Serious: Yes (Other)
  Sender: FDA-Public Use
  Company Number: JP-PFIZER INC-2017111915

PATIENT
  Age: 50 Year
  Sex: Male

DRUGS (2)
  1. LYRICA [Suspect]
     Active Substance: PREGABALIN
     Indication: THORACIC OUTLET SYNDROME
     Dosage: 100 MG, DAILY (DIVIDED IN TWO DOSES TAKEN IN THE MORNING AND IN THE EVENING)
     Route: 048
     Dates: start: 20170307, end: 20170313
  2. LYRICA [Suspect]
     Active Substance: PREGABALIN
     Dosage: 50 MG, 1X/DAY (AFTER DINNER)
     Route: 048
     Dates: start: 20170314

REACTIONS (5)
  - Product use issue [Unknown]
  - Eyelid oedema [Recovered/Resolved]
  - Mental impairment [Recovered/Resolved]
  - Arthralgia [Recovering/Resolving]
  - Dizziness [Not Recovered/Not Resolved]

NARRATIVE: CASE EVENT DATE: 20170308
